FAERS Safety Report 12888609 (Version 4)
Quarter: 2017Q1

REPORT INFORMATION
  Report Type: Report from Study
  Country: BR (occurrence: BR)
  Receive Date: 20161027
  Receipt Date: 20170122
  Transmission Date: 20170428
  Serious: No
  Sender: FDA-Public Use
  Company Number: PHHY2016BR081240

PATIENT
  Sex: Female
  Weight: 69 kg

DRUGS (2)
  1. EXJADE [Suspect]
     Active Substance: DEFERASIROX
     Indication: SICKLE CELL ANAEMIA
     Dosage: 3 DF (1500 MG, 25 MG/KG), QD
     Route: 048
     Dates: start: 2007
  2. FOLIC ACID. [Concomitant]
     Active Substance: FOLIC ACID
     Indication: PRODUCT USED FOR UNKNOWN INDICATION
     Route: 065

REACTIONS (13)
  - Psychiatric symptom [Unknown]
  - Blood iron abnormal [Unknown]
  - Anaemia [Unknown]
  - Blood iron decreased [Unknown]
  - Dysstasia [Unknown]
  - Fatigue [Unknown]
  - Weight increased [Unknown]
  - Product quality issue [Unknown]
  - Asthenia [Unknown]
  - Blood iron increased [Unknown]
  - Influenza [Unknown]
  - Dysphonia [Unknown]
  - Nausea [Unknown]
